FAERS Safety Report 11083150 (Version 1)
Quarter: 2015Q2

REPORT INFORMATION
  Report Type: Spontaneous
  Country: US (occurrence: US)
  Receive Date: 20150501
  Receipt Date: 20150501
  Transmission Date: 20150821
  Serious: No
  Sender: FDA-Public Use
  Company Number: US-ABBVIE-15P-163-1369398-00

PATIENT
  Sex: Male

DRUGS (2)
  1. ANDROGEL [Suspect]
     Active Substance: TESTOSTERONE
     Indication: HYPOGONADISM
     Dosage: 4 PUMPS DAILY
     Route: 061
  2. ANDROGEL [Suspect]
     Active Substance: TESTOSTERONE
     Dosage: 4 PUMPS IN THE MORNING AND 4 PUMPS IN THE EVENING
     Route: 061

REACTIONS (2)
  - Blood testosterone decreased [Not Recovered/Not Resolved]
  - Prescribed overdose [Not Recovered/Not Resolved]
